FAERS Safety Report 6511510-5 (Version None)
Quarter: 2009Q4

REPORT INFORMATION
  Report Type: 
  Country: None (occurrence: None)
  Receive Date: 20091222
  Receipt Date: 20090415
  Transmission Date: 20100525
  Serious: No
  Sender: FDA-Public Use
  Company Number: US-ASTRAZENECA-2009UW09521

PATIENT
  Age: 51 Year
  Sex: Female
  Weight: 88.9 kg

DRUGS (8)
  1. CRESTOR [Suspect]
     Route: 048
     Dates: start: 20090301
  2. GEODON [Concomitant]
  3. KLONOPIN [Concomitant]
  4. NEURONTIN [Concomitant]
  5. ADDERALL 10 [Concomitant]
  6. SLEEPING AIDS [Concomitant]
  7. BABY ASPIRIN [Concomitant]
  8. SUPPLEMENTS [Concomitant]

REACTIONS (1)
  - NIGHT SWEATS [None]
